FAERS Safety Report 10420236 (Version 1)
Quarter: 2014Q3

REPORT INFORMATION
  Report Type: Report from Study
  Country: US (occurrence: None)
  Receive Date: 20140804
  Receipt Date: 20140804
  Transmission Date: 20150326
  Serious: Yes (Hospitalization, Other)
  Sender: FDA-Public Use
  Company Number: 2013US008743

PATIENT
  Age: 55 Year
  Sex: Female

DRUGS (5)
  1. FORADIL(FORMOTEROL FUMARATE) [Concomitant]
  2. XOPENEX(LEVOSSALBUTAMOL HYDROCHLORIDE) [Concomitant]
  3. PROAIR(SALBUTAMOL SULFATE) [Concomitant]
  4. GLASSIA [Suspect]
     Active Substance: .ALPHA.1-PROTEINASE INHIBITOR HUMAN
     Indication: ALPHA-1 ANTI-TRYPSIN DEFICIENCY
  5. UNSPECIFIED NEBULIZER (UNSPECIFIED ) [Concomitant]

REACTIONS (4)
  - Bronchospasm [None]
  - Diarrhoea [None]
  - Pruritus [None]
  - Nausea [None]

NARRATIVE: CASE EVENT DATE: 20130917
